FAERS Safety Report 19480824 (Version 1)
Quarter: 2021Q2

REPORT INFORMATION
  Report Type: Spontaneous
  Country: US (occurrence: US)
  Receive Date: 20210630
  Receipt Date: 20210630
  Transmission Date: 20210717
  Serious: No
  Sender: FDA-Public Use
  Company Number: US-ORGANON-O2106USA001288

PATIENT
  Sex: Female

DRUGS (2)
  1. NEXPLANON [Suspect]
     Active Substance: ETONOGESTREL
     Indication: CONTRACEPTION
     Dosage: 68 MILLIGRAM, IMPLANT INSERTED ONCE
     Route: 059
     Dates: start: 20181017
  2. OXBRYTA [Concomitant]
     Active Substance: VOXELOTOR
     Indication: SICKLE CELL DISEASE
     Dosage: UNK

REACTIONS (1)
  - Diarrhoea [Unknown]
